FAERS Safety Report 8341396-8 (Version None)
Quarter: 2012Q2

REPORT INFORMATION
  Report Type: 
  Country: None (occurrence: None)
  Receive Date: 20120507
  Receipt Date: 20120501
  Transmission Date: 20120825
  Serious: Yes (Other)
  Sender: FDA-Public Use
  Company Number: US-PFIZER INC-2012088506

PATIENT
  Sex: Male
  Weight: 65.76 kg

DRUGS (14)
  1. VYTORIN [Concomitant]
     Dosage: 10-20MG, DAILY
     Route: 048
     Dates: start: 20110223
  2. CELEBREX [Suspect]
     Indication: PAIN IN EXTREMITY
  3. LORTAB [Concomitant]
     Dosage: 10-500MG TABLET EVERY 6 HOURS AS NEEDED
     Route: 048
     Dates: start: 20090707
  4. AMARYL [Concomitant]
     Dosage: 4MG TABLET, DAILY
     Route: 048
     Dates: start: 20110926
  5. ANUSOL HC [Concomitant]
     Dosage: 25 MG
     Dates: start: 20111214
  6. NEURONTIN [Suspect]
     Indication: PAIN
     Dosage: 600 MG, 3X/DAY
     Route: 048
  7. CELEBREX [Suspect]
     Indication: ARTHRITIS
     Dosage: UNK
  8. MELOXICAM [Suspect]
     Dosage: 7.5MG TABLET 1 ORAL DAILY
     Dates: start: 20110404
  9. ZOLPIDEM TARTRATE [Concomitant]
     Dosage: 10MG TABLET AT BEDTIME
     Dates: start: 20111214
  10. NEURONTIN [Suspect]
     Indication: NEUROPATHY PERIPHERAL
     Dosage: 800 MG, 3X/DAY
     Dates: start: 20110701
  11. CARDIZEM [Concomitant]
     Dosage: 360 MG, DAILY
     Dates: start: 20110404
  12. LYRICA [Suspect]
     Indication: PAIN
     Dosage: 75 MG, 2X/DAY
     Route: 048
  13. LYRICA [Suspect]
     Indication: NEUROPATHY PERIPHERAL
     Dosage: 150 MG, 2X/DAY
     Dates: start: 20110701
  14. PLAVIX [Concomitant]
     Dosage: 75 MG, DAILY
     Dates: start: 20100222

REACTIONS (19)
  - DRUG INEFFECTIVE [None]
  - MYRINGITIS [None]
  - GAIT DISTURBANCE [None]
  - MUSCULOSKELETAL STIFFNESS [None]
  - RASH [None]
  - MUSCLE SPASMS [None]
  - ERYTHEMA [None]
  - BACK PAIN [None]
  - PRURITUS [None]
  - TYMPANIC MEMBRANE DISORDER [None]
  - CONTUSION [None]
  - NASAL CONGESTION [None]
  - PAIN IN EXTREMITY [None]
  - JOINT RANGE OF MOTION DECREASED [None]
  - ARTHRALGIA [None]
  - PARAESTHESIA [None]
  - TENDERNESS [None]
  - FATIGUE [None]
  - MYALGIA [None]
